FAERS Safety Report 8762376 (Version 2)
Quarter: 2012Q4

REPORT INFORMATION
  Report Type: 
  Country: PL (occurrence: PL)
  Receive Date: 20120830
  Receipt Date: 20120912
  Transmission Date: 20130627
  Serious: Yes (Hospitalization)
  Sender: FDA-Public Use
  Company Number: PHHY2012PL073638

PATIENT
  Age: 9 Year
  Sex: Male
  Weight: 27 kg

DRUGS (11)
  1. CICLOSPORIN [Suspect]
     Indication: NEPHRITIC SYNDROME
     Dosage: 100 mg, UNK
     Route: 048
  2. CICLOSPORIN [Suspect]
  3. CYCLOPHOSPHAMIDE [Suspect]
     Indication: NEPHRITIC SYNDROME
     Dosage: Total dose of 50 mg/kg
     Route: 048
  4. ENCORTON [Suspect]
     Indication: NEPHRITIC SYNDROME
  5. CHLORAMBUCIL [Suspect]
     Indication: NEPHRITIC SYNDROME
     Dosage: 0.2 mg/kg, UNK
     Route: 048
  6. CHLORAMBUCIL [Suspect]
     Dosage: 4 mg, UNK
  7. LOSARTAN [Concomitant]
     Indication: HYPERTENSION
     Dosage: 10 mg, UNK
  8. AMLODIPINE [Concomitant]
     Indication: HYPERTENSION
     Dosage: 10 mg, UNK
  9. MYCOPHENOLATE MOFETIL [Concomitant]
     Dosage: 1000 mg, UNK
  10. METOPROLOL [Concomitant]
     Indication: HYPERTENSION
     Dosage: 12.5 mg, UNK
  11. SOLU-MEDROL [Concomitant]
     Dosage: 18 mg/kg, UNK

REACTIONS (24)
  - Gingival hyperplasia [Unknown]
  - Oral disorder [Unknown]
  - Gingivitis [Unknown]
  - Leukocytosis [Unknown]
  - Oral mucosal erythema [Unknown]
  - Pneumonia [Unknown]
  - Cytomegalovirus infection [Unknown]
  - Oral candidiasis [Unknown]
  - Respiratory tract infection [Unknown]
  - Gastroenteritis rotavirus [Unknown]
  - Diarrhoea [Unknown]
  - Actinomycosis [Unknown]
  - Peptostreptococcus infection [Unknown]
  - Fusobacterium infection [Unknown]
  - Capnocytophaga infection [Unknown]
  - Streptococcal infection [Unknown]
  - Lactobacillus infection [Unknown]
  - Campylobacter infection [Unknown]
  - Nephritic syndrome [Unknown]
  - Proteinuria [Unknown]
  - Blood cholesterol increased [Unknown]
  - Hirsutism [Unknown]
  - Bone lesion [Unknown]
  - Cushingoid [Unknown]
